FAERS Safety Report 10186404 (Version 1)
Quarter: 2014Q2

REPORT INFORMATION
  Report Type: Spontaneous
  Country: US (occurrence: US)
  Receive Date: 20140521
  Receipt Date: 20140521
  Transmission Date: 20141212
  Serious: No
  Sender: FDA-Public Use
  Company Number: US-ASTRAZENECA-2014SE05286

PATIENT
  Age: 84 Year
  Sex: Male

DRUGS (2)
  1. PULMICORT FLEXHALER [Suspect]
     Dosage: 180 UG, 1 INHALATION, DAILY
     Route: 055
  2. 10 TO 20 MEDICATIONS [Concomitant]

REACTIONS (4)
  - Dyspnoea [Unknown]
  - Fatigue [Unknown]
  - Off label use [Unknown]
  - Drug ineffective [Unknown]
